FAERS Safety Report 14260435 (Version 4)
Quarter: 2018Q3

REPORT INFORMATION
  Report Type: Report from Study
  Country: US (occurrence: US)
  Receive Date: 20171207
  Receipt Date: 20180823
  Transmission Date: 20181010
  Serious: Yes (Hospitalization)
  Sender: FDA-Public Use
  Company Number: US-ACTELION-A-US2016-144611

PATIENT
  Age: 47 Year
  Sex: Female
  Weight: 63.39 kg

DRUGS (4)
  1. VELETRI [Suspect]
     Active Substance: EPOPROSTENOL
     Dosage: 32 NG/KG, PER MIN
     Route: 042
  2. REVATIO [Concomitant]
     Active Substance: SILDENAFIL CITRATE
  3. VELETRI [Suspect]
     Active Substance: EPOPROSTENOL
     Indication: PULMONARY ARTERIAL HYPERTENSION
     Dosage: 28 NG/KG, PER MIN
     Route: 042
     Dates: start: 201604
  4. LETAIRIS [Concomitant]
     Active Substance: AMBRISENTAN

REACTIONS (12)
  - Nasopharyngitis [Unknown]
  - Retching [Unknown]
  - Catheterisation cardiac [Recovered/Resolved]
  - Pleural effusion [Unknown]
  - Abdominal cavity drainage [Unknown]
  - Fluid retention [Unknown]
  - Procedural pneumothorax [Unknown]
  - Aspiration pleural cavity [Unknown]
  - Nausea [Unknown]
  - Pulmonary hypertension [Unknown]
  - Ascites [Unknown]
  - Abdominal discomfort [Not Recovered/Not Resolved]

NARRATIVE: CASE EVENT DATE: 20180122
